FAERS Safety Report 5552564-2 (Version None)
Quarter: 2007Q4

REPORT INFORMATION
  Report Type: 
  Country: None (occurrence: None)
  Receive Date: 20071203
  Receipt Date: 20071120
  Transmission Date: 20080405
  Serious: Yes (Hospitalization)
  Sender: FDA-Public Use
  Company Number: B0497174A

PATIENT
  Age: 16 Year
  Sex: Female

DRUGS (10)
  1. ONDANSETRON HYDROCHLORIDE [Suspect]
     Indication: VOMITING
  2. CLARITHROMYCIN [Suspect]
     Indication: HELICOBACTER INFECTION
  3. LORAZEPAM [Concomitant]
  4. AMOXICILLIN TRIHYDRATE [Concomitant]
  5. PANTOPRAZOLE SODIUM [Concomitant]
  6. METRONIDAZOLE [Concomitant]
  7. COTRIM [Concomitant]
  8. DIPHENHYDRAMINE HCL [Concomitant]
  9. HYDROXYZINE [Concomitant]
  10. POTASSIUM SALT (POTASSIUM) [Concomitant]

REACTIONS (16)
  - ABDOMINAL PAIN [None]
  - ANXIETY [None]
  - CARDIAC ARREST [None]
  - CHEST DISCOMFORT [None]
  - CLOSTRIDIUM DIFFICILE COLITIS [None]
  - CONFUSIONAL STATE [None]
  - ECTHYMA [None]
  - FEELING JITTERY [None]
  - HEADACHE [None]
  - MALAISE [None]
  - NAUSEA [None]
  - NEPHROPATHY TOXIC [None]
  - PSEUDOMONAS INFECTION [None]
  - RENAL TUBULAR NECROSIS [None]
  - TORSADE DE POINTES [None]
  - VENTRICULAR EXTRASYSTOLES [None]
